FAERS Safety Report 5743075-X (Version None)
Quarter: 2008Q2

REPORT INFORMATION
  Report Type: 
  Country: None (occurrence: None)
  Receive Date: 20080516
  Receipt Date: 20071016
  Transmission Date: 20081010
  Serious: Yes (Other)
  Sender: FDA-Public Use
  Company Number: 2007S1000452

PATIENT
  Age: 54 Year
  Sex: Female
  Weight: 86.1 kg

DRUGS (19)
  1. CUBICIN [Suspect]
     Indication: BACTERAEMIA
     Dosage: 5.8 MG/KG;Q24H;IV
     Route: 042
     Dates: start: 20070318, end: 20070419
  2. CUBICIN [Suspect]
     Indication: ENTEROCOCCAL INFECTION
     Dosage: 5.8 MG/KG;Q24H;IV
     Route: 042
     Dates: start: 20070318, end: 20070419
  3. CUBICIN [Suspect]
     Indication: STAPHYLOCOCCAL INFECTION
     Dosage: 5.8 MG/KG;Q24H;IV
     Route: 042
     Dates: start: 20070318, end: 20070419
  4. VANCOMYCIN HCL [Concomitant]
  5. CIPROFLOXACIN [Concomitant]
  6. PIPERACILLIN W/TAZOBACTAM [Concomitant]
  7. METRONIDAZOLE HCL [Concomitant]
  8. CEFEPIME [Concomitant]
  9. CASPOFUNGIN [Concomitant]
  10. EPOETIN ALFA [Concomitant]
  11. AZTREONAM [Concomitant]
  12. ACYCLOVIR [Concomitant]
  13. MEROPENEM [Concomitant]
  14. LEVOPHED [Concomitant]
  15. CISPLATIN [Concomitant]
  16. DIFLUCAN [Concomitant]
  17. DEXAMETHASONE [Concomitant]
  18. PROCHLORPERAZINE [Concomitant]
  19. LORAZEPAM [Concomitant]

REACTIONS (1)
  - RENAL FAILURE [None]
